FAERS Safety Report 17919236 (Version 1)
Quarter: 2020Q2

REPORT INFORMATION
  Report Type: Spontaneous
  Country: US (occurrence: US)
  Receive Date: 20200619
  Receipt Date: 20200619
  Transmission Date: 20200714
  Serious: No
  Sender: FDA-Public Use
  Company Number: US-PFIZER INC-2020-07396

PATIENT
  Age: 52 Year
  Sex: Female

DRUGS (2)
  1. BRAFTOVI [Suspect]
     Active Substance: ENCORAFENIB
     Indication: MALIGNANT MELANOMA
     Dosage: 300 MG, 1X/DAY
     Route: 048
     Dates: start: 2019
  2. MEKTOVI [Suspect]
     Active Substance: BINIMETINIB
     Indication: MALIGNANT MELANOMA
     Dosage: 30 MG, 2X/DAY
     Route: 048
     Dates: start: 2019

REACTIONS (4)
  - Off label use [Unknown]
  - Myalgia [Unknown]
  - Fatigue [Unknown]
  - Arthralgia [Unknown]
